FAERS Safety Report 23263827 (Version 2)
Quarter: 2023Q4

REPORT INFORMATION
  Report Type: Spontaneous
  Country: US (occurrence: US)
  Receive Date: 20231205
  Receipt Date: 20231228
  Transmission Date: 20240110
  Serious: No
  Sender: FDA-Public Use
  Company Number: US-SA-SAC20231201000300

PATIENT
  Sex: Female

DRUGS (5)
  1. DUPIXENT [Suspect]
     Active Substance: DUPILUMAB
     Indication: Sinusitis
     Dosage: 300 MG, QOW
     Route: 058
  2. ATORVASTATIN [Concomitant]
     Active Substance: ATORVASTATIN
     Dosage: UNK
  3. BUTALBITAL [Concomitant]
     Active Substance: BUTALBITAL
  4. LISINOPRIL [Concomitant]
     Active Substance: LISINOPRIL
     Dosage: LISINOPRIL-H TAB 20 12.5M
  5. MONTELUKAST [Concomitant]
     Active Substance: MONTELUKAST SODIUM

REACTIONS (6)
  - Nasal dryness [Unknown]
  - Rash [Unknown]
  - Blister [Unknown]
  - Pain [Unknown]
  - Herpes zoster [Unknown]
  - Product use in unapproved indication [Unknown]
